FAERS Safety Report 17110012 (Version 1)
Quarter: 2019Q4

REPORT INFORMATION
  Report Type: Spontaneous
  Country: US (occurrence: US)
  Receive Date: 20191108
  Receipt Date: 20191108
  Transmission Date: 20200122
  Serious: No
  Sender: FDA-Public Use
  Company Number: None

PATIENT

DRUGS (2)
  1. NALBUPHINE HCL [Suspect]
     Active Substance: NALBUPHINE HYDROCHLORIDE
  2. BUTORPHANOL TARTRATE. [Suspect]
     Active Substance: BUTORPHANOL TARTRATE

REACTIONS (2)
  - Product dispensing error [None]
  - Product appearance confusion [None]
